FAERS Safety Report 12190093 (Version 1)
Quarter: 2016Q1

REPORT INFORMATION
  Report Type: Spontaneous
  Country: US (occurrence: None)
  Receive Date: 20160317
  Receipt Date: 20160317
  Transmission Date: 20160526
  Serious: Yes (Other)
  Sender: FDA-Public Use
  Company Number: None

PATIENT
  Age: 10 Year
  Sex: Female
  Weight: 36.29 kg

DRUGS (4)
  1. MOTRIN [Concomitant]
     Active Substance: IBUPROFEN
  2. TAMIFLU [Suspect]
     Active Substance: OSELTAMIVIR PHOSPHATE
     Indication: DRUG THERAPY
  3. NYASTATIN [Concomitant]
  4. BACTROBAN [Concomitant]
     Active Substance: MUPIROCIN\MUPIROCIN CALCIUM

REACTIONS (9)
  - Genital blister [None]
  - Pollakiuria [None]
  - Genital ulceration [None]
  - Vulvitis [None]
  - Vaginal discharge [None]
  - Genital pain [None]
  - Burning sensation [None]
  - Fixed drug eruption [None]
  - Pruritus genital [None]

NARRATIVE: CASE EVENT DATE: 20160310
